FAERS Safety Report 13317872 (Version 2)
Quarter: 2017Q1

REPORT INFORMATION
  Report Type: Spontaneous
  Country: US (occurrence: US)
  Receive Date: 20170310
  Receipt Date: 20170320
  Transmission Date: 20170428
  Serious: No
  Sender: FDA-Public Use
  Company Number: US-PFIZER INC-2017097433

PATIENT
  Age: 74 Year
  Sex: Female
  Weight: 71.66 kg

DRUGS (1)
  1. IBRANCE [Suspect]
     Active Substance: PALBOCICLIB
     Indication: BREAST CANCER METASTATIC
     Dosage: 125 MG, CYCLIC (DAY 1-21 Q28 DAYS)
     Route: 048
     Dates: start: 20170218

REACTIONS (8)
  - Dyspnoea [Unknown]
  - Crepitations [Unknown]
  - Chest pain [Unknown]
  - Pleural effusion [Unknown]
  - Stomatitis [Unknown]
  - Diarrhoea [Unknown]
  - Chest discomfort [Unknown]
  - Cough [Unknown]
